FAERS Safety Report 17091872 (Version 1)
Quarter: 2019Q4

REPORT INFORMATION
  Report Type: Spontaneous
  Country: US (occurrence: US)
  Receive Date: 20191031
  Receipt Date: 20191031
  Transmission Date: 20200122
  Serious: Yes (Life-Threatening, Hospitalization)
  Sender: FDA-Public Use
  Company Number: None

PATIENT
  Age: 69 Year
  Sex: Male

DRUGS (2)
  1. WARFARIN [Suspect]
     Active Substance: WARFARIN
     Indication: DEEP VEIN THROMBOSIS
  2. WARFARIN [Suspect]
     Active Substance: WARFARIN
     Indication: CEREBROVASCULAR ACCIDENT PROPHYLAXIS
     Route: 048

REACTIONS (14)
  - Superior sagittal sinus thrombosis [None]
  - Tremor [None]
  - Haematuria [None]
  - Haemorrhage [None]
  - Compartment syndrome [None]
  - Confusional state [None]
  - Ecchymosis [None]
  - Depression [None]
  - International normalised ratio increased [None]
  - Hypertension [None]
  - Haemorrhage intracranial [None]
  - Seizure [None]
  - Urinary tract infection [None]
  - Delirium [None]

NARRATIVE: CASE EVENT DATE: 20191007
